FAERS Safety Report 23643194 (Version 1)
Quarter: 2024Q1

REPORT INFORMATION
  Report Type: Report from Study
  Country: DE (occurrence: DE)
  Receive Date: 20240318
  Receipt Date: 20240318
  Transmission Date: 20240410
  Serious: Yes (Hospitalization, Other)
  Sender: FDA-Public Use
  Company Number: DE-SANDOZ-SDZ2024DE022338

PATIENT
  Sex: Female

DRUGS (10)
  1. METHOTREXATE SODIUM [Suspect]
     Active Substance: METHOTREXATE SODIUM
     Indication: Rheumatoid arthritis
     Dosage: 15 MG, 1X/WEEK
     Route: 065
     Dates: end: 202306
  2. PANTOPRAZOLE [Suspect]
     Active Substance: PANTOPRAZOLE
     Dosage: 40 MILLIGRAM, QD
     Route: 065
  3. HYRIMOZ [Suspect]
     Active Substance: ADALIMUMAB-ADAZ
     Indication: Rheumatoid arthritis
     Dosage: 40 MG, EVERY 2 WEEKS
     Route: 065
     Dates: end: 20230620
  4. VITAMIN D NOS [Suspect]
     Active Substance: VITAMIN D NOS
     Dosage: 1000 IU, 1X/DAY
     Route: 065
  5. PREDNISOLONE [Suspect]
     Active Substance: PREDNISOLONE
     Dosage: 2 MG
     Route: 065
  6. HYDROCHLOROTHIAZIDE [Suspect]
     Active Substance: HYDROCHLOROTHIAZIDE
     Dosage: 12.5 MG
     Route: 065
  7. BISOPROLOL [Suspect]
     Active Substance: BISOPROLOL\BISOPROLOL FUMARATE
     Dosage: 5 MG
     Route: 065
  8. CITALOPRAM [Suspect]
     Active Substance: CITALOPRAM HYDROBROMIDE
     Dosage: 10 MG, 1X/DAY
     Route: 065
  9. METAMIZOLE [Suspect]
     Active Substance: METAMIZOLE
     Dosage: UNK
     Route: 065
  10. LITHIUM CARBONATE [Suspect]
     Active Substance: LITHIUM CARBONATE
     Dosage: 450 MG, 2X/DAY
     Route: 065

REACTIONS (1)
  - Bone abscess [Not Recovered/Not Resolved]

NARRATIVE: CASE EVENT DATE: 20230625
